FAERS Safety Report 21675137 (Version 1)
Quarter: 2022Q4

REPORT INFORMATION
  Report Type: Report from Study
  Country: US (occurrence: US)
  Receive Date: 20221202
  Receipt Date: 20221202
  Transmission Date: 20230113
  Serious: Yes (Hospitalization)
  Sender: FDA-Public Use
  Company Number: US-AURINIA PHARMACEUTICALS INC.-AUR-002480

PATIENT
  Sex: Female

DRUGS (1)
  1. LUPKYNIS [Suspect]
     Active Substance: VOCLOSPORIN
     Indication: Lupus nephritis
     Dosage: 23.7 MILLIGRAM, BID
     Route: 048
     Dates: start: 20221020

REACTIONS (12)
  - Full blood count decreased [Unknown]
  - Swelling face [Unknown]
  - Condition aggravated [Unknown]
  - Abdominal distension [Unknown]
  - Vulvovaginal swelling [Unknown]
  - Periorbital swelling [Unknown]
  - Proteinuria [Unknown]
  - Diarrhoea [Unknown]
  - Gingival swelling [Unknown]
  - Gingival bleeding [Unknown]
  - Nausea [Unknown]
  - Absence of immediate treatment response [Unknown]
